FAERS Safety Report 24336835 (Version 1)
Quarter: 2024Q3

REPORT INFORMATION
  Report Type: Spontaneous
  Country: FR (occurrence: FR)
  Receive Date: 20240919
  Receipt Date: 20240919
  Transmission Date: 20241017
  Serious: Yes (Other)
  Sender: ACCORD
  Company Number: None

PATIENT
  Age: 59 Year
  Sex: Female

DRUGS (12)
  1. CLOZAPINE [Suspect]
     Active Substance: CLOZAPINE
     Indication: Psychotic disorder
     Dates: start: 20240816, end: 20240816
  2. OXAZEPAM [Concomitant]
     Active Substance: OXAZEPAM
  3. MELATONIN [Concomitant]
     Active Substance: MELATONIN
     Dosage: 2 MG, PROLONGED-RELEASE TABLET
  4. VALPROATE SODIUM [Concomitant]
     Active Substance: VALPROATE SODIUM
  5. LOVENOX [Concomitant]
     Active Substance: ENOXAPARIN SODIUM
  6. BIMATOPROST\TIMOLOL [Concomitant]
     Active Substance: BIMATOPROST\TIMOLOL
     Dosage: IN BOTH EYES
  7. KARDEGIC [Concomitant]
     Active Substance: ASPIRIN DL-LYSINE
     Dosage: 160 MG, POWDER FOR ORAL SOLUTION IN SACHET
  8. BRINZOLAMIDE [Concomitant]
     Active Substance: BRINZOLAMIDE
     Dosage: IN BOTH EYES
  9. CLOZAPINE [Suspect]
     Active Substance: CLOZAPINE
     Indication: Psychotic disorder
     Dates: start: 20240819, end: 20240820
  10. CLOZAPINE [Suspect]
     Active Substance: CLOZAPINE
     Indication: Psychotic disorder
     Dates: start: 20240817, end: 20240818
  11. CLOZAPINE [Suspect]
     Active Substance: CLOZAPINE
     Indication: Psychotic disorder
     Dates: start: 20240813, end: 20240813
  12. CLOZAPINE [Suspect]
     Active Substance: CLOZAPINE
     Indication: Psychotic disorder
     Dates: start: 20240814, end: 20240815

REACTIONS (1)
  - Epilepsy [Recovered/Resolved]

NARRATIVE: CASE EVENT DATE: 20240819
